FAERS Safety Report 10029568 (Version 1)
Quarter: 2014Q1

REPORT INFORMATION
  Report Type: Spontaneous
  Country: US (occurrence: None)
  Receive Date: 20140320
  Receipt Date: 20140320
  Transmission Date: 20141002
  Serious: No
  Sender: FDA-Public Use
  Company Number: None

PATIENT
  Age: 28 Year
  Sex: Male

DRUGS (1)
  1. CLINDAMYCIN [Suspect]
     Indication: TOOTH ABSCESS
     Dosage: 2 PILLS THREE TIMES DAILY TAKEN BY MOUTH
     Route: 048

REACTIONS (3)
  - Erythema [None]
  - Dyspnoea [None]
  - Abdominal pain upper [None]
